FAERS Safety Report 13377085 (Version 4)
Quarter: 2018Q1

REPORT INFORMATION
  Report Type: Report from Study
  Country: US (occurrence: US)
  Receive Date: 20170328
  Receipt Date: 20180312
  Transmission Date: 20180508
  Serious: Yes (Hospitalization)
  Sender: FDA-Public Use
  Company Number: US-UCBSA-2016023563

PATIENT

DRUGS (12)
  1. LEVETIRACETAM. [Suspect]
     Active Substance: LEVETIRACETAM
     Indication: SEIZURE
     Dosage: UNK
  2. LAMICTAL [Interacting]
     Active Substance: LAMOTRIGINE
     Dosage: BUMPED UP, MAX DOSE
  3. LAMICTAL [Interacting]
     Active Substance: LAMOTRIGINE
     Indication: SEIZURE
     Dosage: UNK
  4. DEPAKOTE [Suspect]
     Active Substance: DIVALPROEX SODIUM
     Indication: SEIZURE
     Dosage: UNK
  5. LAMICTAL [Interacting]
     Active Substance: LAMOTRIGINE
     Dosage: 100 MG/DAYUNK
  6. LATUDA [Concomitant]
     Active Substance: LURASIDONE HYDROCHLORIDE
     Indication: MENTAL DISORDER
     Dosage: UNK
  7. TOPAMAX [Suspect]
     Active Substance: TOPIRAMATE
     Indication: PRODUCT USED FOR UNKNOWN INDICATION
     Dosage: 300 MG/DAY
  8. FELBATOL [Concomitant]
     Active Substance: FELBAMATE
     Indication: SEIZURE
  9. LEVETIRACETAM. [Interacting]
     Active Substance: LEVETIRACETAM
     Dosage: 3000 MG, UNK
  10. PROPRANOLOL [Concomitant]
     Active Substance: PROPRANOLOL HYDROCHLORIDE
     Indication: TREMOR
     Dosage: UNKNOWN DOSE
  11. VIMPAT [Suspect]
     Active Substance: LACOSAMIDE
     Indication: SEIZURE
     Dosage: DOSE: 300 MG/DAY
  12. SAPHRIS [Concomitant]
     Active Substance: ASENAPINE MALEATE
     Indication: MENTAL DISORDER
     Dosage: UNK

REACTIONS (22)
  - Hospitalisation [Unknown]
  - Amnesia [Recovering/Resolving]
  - Diarrhoea [Unknown]
  - Myoclonus [Unknown]
  - Eye movement disorder [Unknown]
  - Weight increased [Unknown]
  - Dizziness [Recovering/Resolving]
  - Tremor [Unknown]
  - Mental disorder [Unknown]
  - Inappropriate affect [Unknown]
  - Seizure [Not Recovered/Not Resolved]
  - Condition aggravated [Unknown]
  - Depression [Unknown]
  - Drug interaction [Unknown]
  - Fatigue [Not Recovered/Not Resolved]
  - Disturbance in attention [Recovered/Resolved]
  - Balance disorder [Unknown]
  - Adverse drug reaction [Unknown]
  - Treatment noncompliance [Unknown]
  - Drug ineffective [Unknown]
  - Schizoaffective disorder [Unknown]
  - Multiple-drug resistance [Not Recovered/Not Resolved]
